FAERS Safety Report 8281563-5 (Version None)
Quarter: 2012Q2

REPORT INFORMATION
  Report Type: 
  Country: None (occurrence: None)
  Receive Date: 20120413
  Receipt Date: 20120404
  Transmission Date: 20120825
  Serious: Yes (Other)
  Sender: FDA-Public Use
  Company Number: US-UCBSA-052136

PATIENT
  Age: 29 Year
  Sex: Female

DRUGS (6)
  1. VIMPAT [Suspect]
     Indication: COMPLEX PARTIAL SEIZURES
     Route: 048
     Dates: end: 20120201
  2. VIMPAT [Suspect]
     Route: 048
     Dates: start: 20111222
  3. PROMISEB [Concomitant]
  4. CARBATROL [Suspect]
     Indication: CONVULSION
  5. ORAL CONTRACEPTIVES [Concomitant]
  6. CEPHALEXIN [Concomitant]

REACTIONS (2)
  - ELECTROCARDIOGRAM QT PROLONGED [None]
  - SINUS TACHYCARDIA [None]
